FAERS Safety Report 9353624 (Version 1)
Quarter: 2013Q2

REPORT INFORMATION
  Report Type: Spontaneous
  Country: US (occurrence: US)
  Receive Date: 20130618
  Receipt Date: 20130618
  Transmission Date: 20140414
  Serious: No
  Sender: FDA-Public Use
  Company Number: US-009507513-1306USA003533

PATIENT
  Sex: Male

DRUGS (4)
  1. ZOCOR [Suspect]
     Indication: BLOOD CHOLESTEROL INCREASED
     Dosage: 40 MG, QD
     Route: 048
     Dates: start: 2009
  2. ZOCOR [Suspect]
     Dosage: 1/2 OF THE TABLET ONCE DAILY
     Route: 048
  3. ZOCOR [Suspect]
     Dosage: UNK, QOD
     Route: 048
     Dates: end: 2009
  4. METFORMIN [Concomitant]

REACTIONS (3)
  - Myalgia [Recovered/Resolved]
  - Blood creatine phosphokinase increased [Recovered/Resolved]
  - Wrong technique in drug usage process [Unknown]
